FAERS Safety Report 13617245 (Version 1)
Quarter: 2017Q2

REPORT INFORMATION
  Report Type: Spontaneous
  Country: US (occurrence: US)
  Receive Date: 20170606
  Receipt Date: 20170606
  Transmission Date: 20170830
  Serious: No
  Sender: FDA-Public Use
  Company Number: US-SA-2016SA197074

PATIENT
  Age: 63 Year
  Sex: Male

DRUGS (5)
  1. SOLOSTAR [Concomitant]
     Active Substance: DEVICE
     Indication: TYPE 2 DIABETES MELLITUS
     Dosage: FREQUENCY: 3-4 TIMES A DAY
     Dates: start: 201608
  2. HUMALOG [Concomitant]
     Active Substance: INSULIN LISPRO
  3. LANTUS SOLOSTAR [Suspect]
     Active Substance: INSULIN GLARGINE
     Indication: TYPE 2 DIABETES MELLITUS
     Dosage: DOSE: 8-10 UNITS?FREQUENCY:3-4 TIMES
     Route: 065
     Dates: start: 201608
  4. LEVEMIR [Concomitant]
     Active Substance: INSULIN DETEMIR
  5. HUMALOG MIX75/25 [Concomitant]
     Active Substance: INSULIN LISPRO

REACTIONS (7)
  - Blood glucose increased [Unknown]
  - Muscle spasms [Unknown]
  - Product use issue [Unknown]
  - Psychomotor hyperactivity [Unknown]
  - Back pain [Unknown]
  - Blood glucose abnormal [Unknown]
  - Presyncope [Unknown]
